FAERS Safety Report 9349625 (Version 1)
Quarter: 2013Q2

REPORT INFORMATION
  Report Type: Spontaneous
  Country: JP (occurrence: None)
  Receive Date: 20130611
  Receipt Date: 20130611
  Transmission Date: 20140414
  Serious: Yes (Other)
  Sender: FDA-Public Use
  Company Number: 2013P1006705

PATIENT
  Age: 39 Year
  Sex: Female

DRUGS (1)
  1. HEPARIN [Suspect]
     Indication: ANTICOAGULANT THERAPY

REACTIONS (5)
  - Deep vein thrombosis [None]
  - Heparin-induced thrombocytopenia [None]
  - No therapeutic response [None]
  - Disease progression [None]
  - Thrombosis in device [None]
